FAERS Safety Report 8217198-X (Version None)
Quarter: 2012Q1

REPORT INFORMATION
  Report Type: 
  Country: None (occurrence: None)
  Receive Date: 20120319
  Receipt Date: 20120309
  Transmission Date: 20120608
  Serious: Yes (Other)
  Sender: FDA-Public Use
  Company Number: JP-BRISTOL-MYERS SQUIBB COMPANY-16448169

PATIENT
  Age: 41 Year
  Sex: Female

DRUGS (2)
  1. ORENCIA [Suspect]
     Indication: RHEUMATOID ARTHRITIS
     Dosage: ONCE EVERY MONTH
     Route: 041
     Dates: start: 20110325
  2. RHEUMATREX [Suspect]
     Indication: RHEUMATOID ARTHRITIS
     Dosage: ONCE EVERY WEEK REDUCED DOSE TO 4MG
     Route: 048

REACTIONS (1)
  - COLITIS ULCERATIVE [None]
